FAERS Safety Report 4880162-2 (Version None)
Quarter: 2005Q4

REPORT INFORMATION
  Report Type: 
  Country: None (occurrence: None)
  Receive Date: 20051223
  Receipt Date: 20051017
  Transmission Date: 20060501
  Serious: No
  Sender: FDA-Public Use
  Company Number: 05P-163-0314350-00

PATIENT
  Age: 61 Year
  Sex: Female
  Weight: 73.4827 kg

DRUGS (4)
  1. HUMIRA [Suspect]
     Indication: RHEUMATOID ARTHRITIS
     Dosage: 40 MG, 1 IN 2 WK, SUBCUTANEOUS
     Route: 058
     Dates: start: 20041001, end: 20051015
  2. ANCOVERT [Concomitant]
  3. FORTEO [Concomitant]
  4. METHOTREXATE [Concomitant]

REACTIONS (4)
  - CONDITION AGGRAVATED [None]
  - COUGH [None]
  - MENIERE'S DISEASE [None]
  - UPPER RESPIRATORY TRACT INFECTION [None]
